FAERS Safety Report 21455208 (Version 1)
Quarter: 2022Q4

REPORT INFORMATION
  Report Type: Spontaneous
  Country: SE (occurrence: None)
  Receive Date: 20221014
  Receipt Date: 20221014
  Transmission Date: 20230113
  Serious: Yes (Hospitalization)
  Sender: FDA-Public Use
  Company Number: 2022A339200

PATIENT
  Age: 82 Year
  Sex: Male

DRUGS (9)
  1. CALQUENCE [Suspect]
     Active Substance: ACALABRUTINIB
     Indication: Neoplasm malignant
     Dosage: 1X2
     Route: 048
     Dates: end: 20220923
  2. ELIQUIS [Suspect]
     Active Substance: APIXABAN
     Indication: Anticoagulant therapy
     Dosage: 1X2
     Route: 048
     Dates: end: 20220923
  3. DESLORATADINE [Concomitant]
     Active Substance: DESLORATADINE
     Dosage: 5 MG 1X1
     Route: 048
     Dates: start: 20220824
  4. CITALOPRAM [Concomitant]
     Active Substance: CITALOPRAM HYDROBROMIDE
     Dosage: 30 0,5X1
     Route: 048
     Dates: start: 20220816
  5. MELATONIN [Concomitant]
     Active Substance: MELATONIN
     Dosage: 2.0MG AS REQUIRED
     Route: 048
  6. ATORVASTATIN [Concomitant]
     Active Substance: ATORVASTATIN
     Dosage: 20 1X1
     Route: 048
     Dates: start: 20210607
  7. METOPROLOL [Concomitant]
     Active Substance: METOPROLOL
     Dosage: 50 1X1
     Route: 048
     Dates: start: 20210920
  8. FURIX [Concomitant]
     Dosage: 40 MG 1X1
     Route: 048
     Dates: start: 20210511
  9. ACETAMINOPHEN\CODEINE PHOSPHATE [Concomitant]
     Active Substance: ACETAMINOPHEN\CODEINE PHOSPHATE
     Dosage: 500 MG/30 MG 1-2 TABLETS IF NECESSARY AS REQUIRED
     Route: 048

REACTIONS (1)
  - Subdural haemorrhage [Unknown]

NARRATIVE: CASE EVENT DATE: 20220922
